FAERS Safety Report 21310659 (Version 1)
Quarter: 2022Q3

REPORT INFORMATION
  Report Type: Spontaneous
  Country: RU (occurrence: RU)
  Receive Date: 20220909
  Receipt Date: 20220909
  Transmission Date: 20221027
  Serious: Yes (Other)
  Sender: FDA-Public Use
  Company Number: RU-HETERO-HET2022RU02188

PATIENT
  Age: 20 Year
  Sex: Female

DRUGS (1)
  1. LEVETIRACETAM [Suspect]
     Active Substance: LEVETIRACETAM
     Indication: Partial seizures
     Dosage: 600 MG, QD
     Route: 048
     Dates: start: 2021, end: 202206

REACTIONS (3)
  - Epilepsy [Recovering/Resolving]
  - Drug ineffective [Unknown]
  - Weight decreased [Recovering/Resolving]

NARRATIVE: CASE EVENT DATE: 20210101
